FAERS Safety Report 10716539 (Version 2)
Quarter: 2015Q1

REPORT INFORMATION
  Report Type: Spontaneous
  Country: US (occurrence: US)
  Receive Date: 20150116
  Receipt Date: 20150130
  Transmission Date: 20150721
  Serious: No
  Sender: FDA-Public Use
  Company Number: US-009507513-1412USA004282

PATIENT
  Age: 58 Year
  Sex: Female

DRUGS (4)
  1. ZETIA [Suspect]
     Active Substance: EZETIMIBE
     Indication: BLOOD CHOLESTEROL
     Dosage: 10 MG, ONCE DAILY
     Route: 048
     Dates: start: 2011, end: 201412
  2. KRILL OIL [Concomitant]
     Active Substance: DIETARY SUPPLEMENT
  3. DIOVAN [Concomitant]
     Active Substance: VALSARTAN
  4. VITAMIN D [Concomitant]
     Active Substance: CHOLECALCIFEROL

REACTIONS (1)
  - Muscle spasms [Unknown]

NARRATIVE: CASE EVENT DATE: 2013
